FAERS Safety Report 6395390-7 (Version None)
Quarter: 2009Q4

REPORT INFORMATION
  Report Type: 
  Country: None (occurrence: None)
  Receive Date: 20091009
  Receipt Date: 20091001
  Transmission Date: 20100525
  Serious: Yes (Hospitalization)
  Sender: FDA-Public Use
  Company Number: US-ELI_LILLY_AND_COMPANY-US200908002953

PATIENT
  Sex: Male
  Weight: 125.17 kg

DRUGS (8)
  1. BYETTA [Suspect]
     Indication: TYPE 2 DIABETES MELLITUS
     Dosage: 5 UG, 2/D
     Route: 058
     Dates: start: 20071201, end: 20080401
  2. BYETTA [Suspect]
     Dosage: 10 UG, 2/D
     Route: 058
     Dates: start: 20080401, end: 20090813
  3. METFORMIN HCL [Concomitant]
     Dosage: 500 MG, 2/D
     Route: 065
  4. GLIMEPIRIDE [Concomitant]
     Dosage: 4 MG, 2/D
     Route: 065
  5. LISINOPRIL [Concomitant]
     Dosage: UNK, DAILY (1/D)
     Route: 065
  6. COREG [Concomitant]
     Dosage: 12.5 MG, DAILY (1/D)
     Route: 065
  7. TRICOR [Concomitant]
     Dosage: 145 MG, DAILY (1/D)
     Route: 065
  8. NIASPAN [Concomitant]
     Dosage: 500 MG, DAILY (1/D)
     Route: 065

REACTIONS (6)
  - ABDOMINAL PAIN [None]
  - CHOLELITHIASIS [None]
  - NAUSEA [None]
  - PANCREATITIS [None]
  - VOMITING [None]
  - WEIGHT DECREASED [None]
